FAERS Safety Report 8218472-3 (Version None)
Quarter: 2012Q1

REPORT INFORMATION
  Report Type: 
  Country: None (occurrence: None)
  Receive Date: 20120305
  Receipt Date: 20111212
  Transmission Date: 20120608
  Serious: No
  Sender: FDA-Public Use
  Company Number: 1000026184

PATIENT
  Age: 66 Year
  Sex: Female

DRUGS (20)
  1. NEXIUM [Concomitant]
  2. WELCHOL [Concomitant]
  3. NASONEX (MOMETASONE FUROATE) (MOMETASONE FUROATE) [Concomitant]
  4. CARDIZEM [Concomitant]
  5. ALLOPURINOL [Concomitant]
  6. LAMICTAL [Concomitant]
  7. ATROVENT (IPRATROPIUM BROMIDE) (IPRATROPIUM BROMIDE) [Concomitant]
  8. FLOVENT (FLUTICASONE PROPIONATE) (FLUTICASONE PROPIONATE) [Concomitant]
  9. PROAIR (FLUTICASONE PROPIONATE) (FLUTICASONE PROPIONATE) [Concomitant]
  10. DIFLUCAN (FLUCONAZOLE) (FLUCONAZOLE) [Concomitant]
  11. LOMOTIL (LOMOTIL) (LOMOTIL) [Concomitant]
  12. DIOVAN [Concomitant]
  13. LITHIUM CARBONATE [Concomitant]
  14. CARAFATE (SUCRALFATE) (SUCRALFATE) [Concomitant]
  15. PREMARIN (ESTROGENS CONJUGATED) (ESTROGENS CONJUGATED) [Concomitant]
  16. DIAZEPAM [Concomitant]
  17. LASIX [Concomitant]
  18. SEROQUEL (QUETIAPINE FUMARATE) (QUETIAPINE FUMARATE) [Concomitant]
  19. DALIRESP [Suspect]
     Indication: CHRONIC OBSTRUCTIVE PULMONARY DISEASE
     Dosage: 500 MCG (500 MCG, 1 IN 1 D), ORAL
     Route: 048
     Dates: start: 20111207
  20. ALBUTEROL (ALBUTEROL) (ALBUTEROL) [Concomitant]

REACTIONS (1)
  - CHEST PAIN [None]
